FAERS Safety Report 22812643 (Version 2)
Quarter: 2024Q4

REPORT INFORMATION
  Report Type: Spontaneous
  Country: US (occurrence: US)
  Receive Date: 20230811
  Receipt Date: 20241202
  Transmission Date: 20250114
  Serious: No
  Sender: NOBELPHARMA AMERICA, LLC
  Company Number: US-Nobelpharma America, LLC-NPA-2023-01545

PATIENT
  Sex: Female

DRUGS (3)
  1. HYFTOR [Suspect]
     Active Substance: SIROLIMUS
     Indication: Tuberous sclerosis complex
     Dosage: APPLY 2.5CM TOPICAL GEL TO THE AFFECTED AREA OF THE FACE TWICE A DAY, AT MORNING AND BEDTIME
     Route: 061
     Dates: start: 20230221
  2. HYFTOR [Suspect]
     Active Substance: SIROLIMUS
     Dosage: APPLY 2.5CM TOPICAL GEL TO THE AFFECTED AREA OF THE FACE TWICE A DAY, AT MORNING AND BEDTIME
     Route: 061
     Dates: start: 2023
  3. VITAMIN C [Concomitant]
     Active Substance: ASCORBIC ACID

REACTIONS (3)
  - Dry skin [Unknown]
  - Skin burning sensation [Unknown]
  - Product dose omission issue [Unknown]
